FAERS Safety Report 4768687-1 (Version None)
Quarter: 2005Q3

REPORT INFORMATION
  Report Type: 
  Country: None (occurrence: None)
  Receive Date: 20050914
  Receipt Date: 20050913
  Transmission Date: 20060218
  Serious: Yes (Death)
  Sender: FDA-Public Use
  Company Number: AU-JNJFOC-20050805496

PATIENT
  Age: 89 Year
  Sex: Female

DRUGS (1)
  1. RISPERIDONE [Suspect]
     Indication: DEMENTIA

REACTIONS (1)
  - DEATH [None]
